FAERS Safety Report 8264442-9 (Version None)
Quarter: 2012Q2

REPORT INFORMATION
  Report Type: 
  Country: None (occurrence: None)
  Receive Date: 20120406
  Receipt Date: 20120403
  Transmission Date: 20120825
  Serious: No
  Sender: FDA-Public Use
  Company Number: US-PFIZER INC-2012084547

PATIENT
  Sex: Male
  Weight: 62.6 kg

DRUGS (2)
  1. MEDROL [Suspect]
     Indication: POSTOPERATIVE CARE
     Dosage: 2 MG, 1X/DAY
     Route: 048
     Dates: start: 19950101, end: 20120331
  2. PROGRAF [Concomitant]
     Dosage: UNK

REACTIONS (1)
  - MALAISE [None]
